FAERS Safety Report 17228085 (Version 1)
Quarter: 2020Q1

REPORT INFORMATION
  Report Type: Spontaneous
  Country: FR (occurrence: FR)
  Receive Date: 20200103
  Receipt Date: 20200103
  Transmission Date: 20200409
  Serious: Yes (Hospitalization)
  Sender: FDA-Public Use
  Company Number: FR-TEVA-2019-FR-1160601

PATIENT
  Age: 15 Year
  Sex: Female
  Weight: 55 kg

DRUGS (2)
  1. IXPRIM [Suspect]
     Active Substance: ACETAMINOPHEN\TRAMADOL HYDROCHLORIDE
     Indication: SUICIDE ATTEMPT
     Dosage: 37.5 MG / 325
     Route: 048
     Dates: start: 20190512, end: 20190512
  2. IBUPROFENE [Suspect]
     Active Substance: IBUPROFEN
     Indication: SUICIDE ATTEMPT
     Route: 048
     Dates: start: 20190512, end: 20190512

REACTIONS (4)
  - Blood creatine increased [Unknown]
  - Vomiting [Recovering/Resolving]
  - Vertigo [Recovered/Resolved]
  - Miosis [Recovered/Resolved]

NARRATIVE: CASE EVENT DATE: 20190513
